FAERS Safety Report 9443027 (Version 1)
Quarter: 2013Q3

REPORT INFORMATION
  Report Type: Report from Study
  Country: BR (occurrence: BR)
  Receive Date: 20130806
  Receipt Date: 20130806
  Transmission Date: 20140515
  Serious: Yes (Other)
  Sender: FDA-Public Use
  Company Number: PHHY2013BR083764

PATIENT
  Sex: Female
  Weight: 68.7 kg

DRUGS (4)
  1. EXELON [Suspect]
     Indication: DEMENTIA
     Dosage: 1 DF, Q12H
     Route: 048
     Dates: start: 2008
  2. QUETIAPINE [Concomitant]
     Dosage: UNK UKN, UNK
  3. ENALAPRIL [Concomitant]
     Indication: BLOOD PRESSURE ABNORMAL
     Dosage: UNK UKN, UNK
  4. MAXAPRAN [Concomitant]
     Indication: DEPRESSION
     Dosage: UNK UKN, UNK

REACTIONS (2)
  - Renal cancer [Recovered/Resolved]
  - Vomiting [Recovered/Resolved]
